FAERS Safety Report 8297230-8 (Version None)
Quarter: 2012Q2

REPORT INFORMATION
  Report Type: 
  Country: None (occurrence: None)
  Receive Date: 20120416
  Receipt Date: 20120405
  Transmission Date: 20120825
  Serious: Yes (Congenital Anomaly)
  Sender: FDA-Public Use
  Company Number: 2012SP018299

PATIENT
  Sex: Male
  Weight: 3.5 kg

DRUGS (6)
  1. FEMBION [Concomitant]
  2. REMERON [Suspect]
     Indication: MATERNAL EXPOSURE DURING PREGNANCY
     Dosage: TRPL
     Route: 064
     Dates: start: 20100106, end: 20100914
  3. BRONCHIPECT [Concomitant]
  4. AZITHROMYCIN [Concomitant]
  5. LORAZEPAM [Concomitant]
  6. ACETAMINOPHEN [Concomitant]

REACTIONS (13)
  - ELECTROCARDIOGRAM DELTA WAVES ABNORMAL [None]
  - MATERNAL DRUGS AFFECTING FOETUS [None]
  - PREMATURE BABY [None]
  - NEONATAL TACHYCARDIA [None]
  - WOLFF-PARKINSON-WHITE SYNDROME [None]
  - PULMONARY ARTERY STENOSIS [None]
  - FOETAL HYPOKINESIA [None]
  - CAESAREAN SECTION [None]
  - LARGE FOR DATES BABY [None]
  - PULMONARY ARTERY STENOSIS CONGENITAL [None]
  - ATRIAL SEPTAL DEFECT [None]
  - FOETAL HEART RATE ABNORMAL [None]
  - LABOUR INDUCTION [None]
